FAERS Safety Report 9423816 (Version 2)
Quarter: 2013Q3

REPORT INFORMATION
  Report Type: Spontaneous
  Country: IT (occurrence: IT)
  Receive Date: 20130729
  Receipt Date: 20130920
  Transmission Date: 20140515
  Serious: Yes (Other)
  Sender: FDA-Public Use
  Company Number: IT-009507513-1307ITA014531

PATIENT
  Age: 59 Year
  Sex: Female
  Weight: 80 kg

DRUGS (4)
  1. ESMERON [Suspect]
     Indication: NEUROMUSCULAR BLOCKING THERAPY
     Dosage: 50 MCG, ONCE, STRENGTH: 10MG/ ML
     Route: 042
     Dates: start: 20130716, end: 20130716
  2. PROPOFOL FRESENIUS KABI [Suspect]
     Indication: ANAESTHESIA
     Dosage: 150 MG, ONCE, 50 MG, ONCE, STRENGTH: 10MG/ ML
     Route: 042
     Dates: start: 20130716, end: 20130716
  3. FENTANEST [Concomitant]
     Dosage: 50 MCG, 0.1MG/2 ML
     Route: 042
  4. MIDAZOLAM [Concomitant]
     Dosage: 2 MG ,  5MG/ML
     Route: 042

REACTIONS (1)
  - Anaphylactic shock [Recovering/Resolving]
